FAERS Safety Report 7001462-6 (Version None)
Quarter: 2010Q3

REPORT INFORMATION
  Report Type: 
  Country: None (occurrence: None)
  Receive Date: 20100920
  Receipt Date: 20100504
  Transmission Date: 20110219
  Serious: No
  Sender: FDA-Public Use
  Company Number: US-ASTRAZENECA-2010SE20291

PATIENT
  Age: 51 Year
  Sex: Female
  Weight: 125.2 kg

DRUGS (7)
  1. SEROQUEL XR [Suspect]
     Indication: BIPOLAR DISORDER
     Route: 048
     Dates: start: 20060601, end: 20100201
  2. SEROQUEL XR [Suspect]
     Indication: BIPOLAR I DISORDER
     Route: 048
     Dates: start: 20060601, end: 20100201
  3. CRESTOR [Concomitant]
  4. LAMICTAL [Concomitant]
  5. EFFEXOR XR [Concomitant]
  6. KLONOPIN [Concomitant]
  7. RANITIDINE [Concomitant]

REACTIONS (5)
  - APATHY [None]
  - DEPRESSION [None]
  - INCREASED APPETITE [None]
  - NIGHTMARE [None]
  - WEIGHT INCREASED [None]
